FAERS Safety Report 25757450 (Version 1)
Quarter: 2025Q3

REPORT INFORMATION
  Report Type: Spontaneous
  Country: JP (occurrence: JP)
  Receive Date: 20250903
  Receipt Date: 20250903
  Transmission Date: 20251021
  Serious: Yes (Hospitalization)
  Sender: PFIZER
  Company Number: JP-PFIZER INC-202500158161

PATIENT
  Age: 83 Year
  Sex: Male

DRUGS (16)
  1. TAFAMIDIS [Suspect]
     Active Substance: TAFAMIDIS
     Indication: Cardiac amyloidosis
     Dosage: 61 MG, 1X/DAY, AFTER BREAKFAST
     Route: 048
  2. AZOSEMIDE [Suspect]
     Active Substance: AZOSEMIDE
     Dosage: 30 MG, 1X/DAY, AFTER BREAKFAST
     Route: 048
  3. MIRTAZAPINE [Suspect]
     Active Substance: MIRTAZAPINE
     Dosage: 30 MG, 1X/DAY, BEFORE BEDTIME
     Route: 048
  4. TAMSULOSIN [Concomitant]
     Active Substance: TAMSULOSIN
     Dosage: 0.2 MG, 1X/DAY, AFTER BREAKFAST
     Route: 048
  5. CLOPIDOGREL [Concomitant]
     Active Substance: CLOPIDOGREL BISULFATE
     Dosage: 75 MG, 1X/DAY, AFTER DINNER
     Route: 048
  6. BETHANECHOL CHLORIDE [Concomitant]
     Active Substance: BETHANECHOL CHLORIDE
     Dosage: 0.2 G, 2X/DAY, AFTER BREAKFAST AND DINNER
     Route: 048
  7. TADALAFIL ZA [Concomitant]
     Dosage: 2.5 MG, 1X/DAY, AFTER BREAKFAST
     Route: 048
  8. ESOMEPRAZOLE [Concomitant]
     Active Substance: ESOMEPRAZOLE
     Dosage: 20 MG, 1X/DAY, AFTER BREAKFAST
     Route: 048
  9. CARVEDILOL [Concomitant]
     Active Substance: CARVEDILOL
     Dosage: 1.25 MG, 2X/DAY, AFTER BREAKFAST AND DINNER
     Route: 048
  10. MAGNESIUM OXIDE [Concomitant]
     Active Substance: MAGNESIUM OXIDE
     Dosage: 330 MG, 2X/DAY, AFTER BREAKFAST AND DINNER
     Route: 048
  11. POTASSIUM ASPARTATE [Concomitant]
     Active Substance: POTASSIUM ASPARTATE
     Dosage: 900 MG, 2X/DAY, AFTER BREAKFAST AND DINNER
     Route: 048
  12. MIYA-BM [Concomitant]
     Active Substance: CLOSTRIDIUM BUTYRICUM SPORES STRAIN M-55
     Dosage: 2 TABLETS, 3X/DAY, AFTER BREAKFAST, LUNCH, AND DINNER
     Route: 048
  13. CALONAL [Concomitant]
     Active Substance: ACETAMINOPHEN
     Indication: Pain
     Route: 048
  14. DOMPERIDONE [Concomitant]
     Active Substance: DOMPERIDONE
     Indication: Nausea
     Route: 048
  15. DAYVIGO [Concomitant]
     Active Substance: LEMBOREXANT
     Dosage: 10 MG, 1X/DAY, BEFORE BEDTIME
     Route: 048
  16. CLOTIAZEPAM [Concomitant]
     Active Substance: CLOTIAZEPAM
     Route: 048

REACTIONS (2)
  - Altered state of consciousness [Recovered/Resolved]
  - Hyponatraemia [Recovered/Resolved]

NARRATIVE: CASE EVENT DATE: 20250725
